FAERS Safety Report 12129980 (Version 1)
Quarter: 2016Q1

REPORT INFORMATION
  Report Type: Spontaneous
  Country: US (occurrence: None)
  Receive Date: 20160229
  Receipt Date: 20160229
  Transmission Date: 20160526
  Serious: Yes (Hospitalization)
  Sender: FDA-Public Use
  Company Number: None

PATIENT
  Age: 67 Year
  Sex: Male
  Weight: 90.9 kg

DRUGS (2)
  1. LOSARTAN. [Suspect]
     Active Substance: LOSARTAN
     Indication: HYPERTENSION
     Route: 048
     Dates: start: 20141230, end: 20150408
  2. SULINDAC. [Suspect]
     Active Substance: SULINDAC
     Indication: PAIN
     Route: 048
     Dates: start: 20140123

REACTIONS (4)
  - Acute kidney injury [None]
  - Sinus bradycardia [None]
  - Atrioventricular block first degree [None]
  - Hyperkalaemia [None]

NARRATIVE: CASE EVENT DATE: 20150406
